FAERS Safety Report 7465214-5 (Version None)
Quarter: 2011Q2

REPORT INFORMATION
  Report Type: 
  Country: None (occurrence: None)
  Receive Date: 20110509
  Receipt Date: 20110426
  Transmission Date: 20111010
  Serious: Yes (Disabling, Other)
  Sender: FDA-Public Use
  Company Number: PHHY2011US27651

PATIENT
  Sex: Female

DRUGS (2)
  1. OXYCODONE [Concomitant]
  2. GLEEVEC [Suspect]
     Indication: CHRONIC MYELOID LEUKAEMIA
     Dosage: 400 MG, ONCE/SINGLE
     Route: 048
     Dates: start: 20110224

REACTIONS (2)
  - NAUSEA [None]
  - NEOPLASM MALIGNANT [None]
